FAERS Safety Report 5168008-9 (Version None)
Quarter: 2006Q4

REPORT INFORMATION
  Report Type: 
  Country: None (occurrence: None)
  Receive Date: 20061208
  Receipt Date: 20060130
  Transmission Date: 20070319
  Serious: No
  Sender: FDA-Public Use
  Company Number: US-GLAXOSMITHKLINE-A0591504A

PATIENT
  Age: 65 Year
  Sex: Female

DRUGS (9)
  1. AVANDAMET [Suspect]
  2. AVANDIA [Suspect]
     Dosage: 2MG TWICE PER DAY
     Route: 048
     Dates: start: 20050101
  3. VYTORIN [Suspect]
  4. AMARYL [Suspect]
  5. PLAVIX [Suspect]
  6. DIOVAN [Concomitant]
  7. FERROUS SULFATE TAB [Concomitant]
  8. CALCIUM [Concomitant]
  9. MULTI-VITAMIN [Concomitant]

REACTIONS (2)
  - DIARRHOEA [None]
  - RENAL IMPAIRMENT [None]
